FAERS Safety Report 25272953 (Version 3)
Quarter: 2025Q2

REPORT INFORMATION
  Report Type: Other
  Country: US (occurrence: US)
  Receive Date: 20250506
  Receipt Date: 20250623
  Transmission Date: 20250716
  Serious: No
  Sender: TRAVERE THERAPEUTICS
  Company Number: US-TRAVERE-2025TVT00527

PATIENT
  Age: 48 Year
  Sex: Male

DRUGS (2)
  1. FILSPARI [Suspect]
     Active Substance: SPARSENTAN
     Indication: IgA nephropathy
     Route: 048
     Dates: start: 20250401
  2. FILSPARI [Suspect]
     Active Substance: SPARSENTAN
     Route: 048
     Dates: start: 20250415

REACTIONS (4)
  - Peripheral swelling [None]
  - Vision blurred [Unknown]
  - Photophobia [Unknown]
  - Visual impairment [Unknown]

NARRATIVE: CASE EVENT DATE: 20250401
